FAERS Safety Report 4711720-3 (Version None)
Quarter: 2005Q2

REPORT INFORMATION
  Report Type: 
  Country: None (occurrence: None)
  Receive Date: 20050629
  Receipt Date: 20050426
  Transmission Date: 20051028
  Serious: No
  Sender: FDA-Public Use
  Company Number: 05P-163-0298565-00

PATIENT
  Age: 61 Year
  Sex: Female
  Weight: 72.5755 kg

DRUGS (5)
  1. HUMIRA [Suspect]
     Indication: RHEUMATOID ARTHRITIS
     Dosage: SEE IMAGE
     Route: 058
     Dates: start: 20040101, end: 20041101
  2. HUMIRA [Suspect]
     Indication: RHEUMATOID ARTHRITIS
     Dosage: SEE IMAGE
     Route: 058
     Dates: start: 20041101
  3. HYDROCHLOROQUINE PHOSPHATE [Concomitant]
  4. DOXYCYCLINE [Concomitant]
  5. LANSOPRAZOLE [Concomitant]

REACTIONS (3)
  - ARTHRITIS [None]
  - CONDITION AGGRAVATED [None]
  - OSTEOARTHRITIS [None]
